FAERS Safety Report 10025954 (Version 1)
Quarter: 2014Q1

REPORT INFORMATION
  Report Type: Spontaneous
  Country: FR (occurrence: None)
  Receive Date: 20140314
  Receipt Date: 20140314
  Transmission Date: 20141002
  Serious: Yes (Hospitalization)
  Sender: FDA-Public Use
  Company Number: FR-RRD-14-00028

PATIENT
  Age: 4 Day
  Sex: Male
  Weight: .79 kg

DRUGS (7)
  1. NEOPROFEN [Suspect]
     Indication: PATENT DUCTUS ARTERIOSUS
     Route: 042
     Dates: start: 20140216, end: 20140216
  2. CAFFEINE [Suspect]
     Indication: APNOEA NEONATAL
     Dosage: UNKNOWN
     Dates: start: 20140214
  3. FENTANYL [Suspect]
     Indication: PAIN
     Dosage: UNKNOWN
     Dates: start: 20140214
  4. PHYTOMENADIONE [Suspect]
     Indication: HAEMORRHAGE PROPHYLAXIS
     Dosage: TAKEN ON 14, 16 AND 17-FEB-2014), UNKNOWN
     Dates: start: 20140214, end: 20140217
  5. TRIFLUCAN [Suspect]
     Indication: INFECTION
     Dates: start: 20140217, end: 20140217
  6. CUROSURF (CUROSURF /01227201/) (SODIUM CHLORIDE, PHOSPHOLIPIDFRACTION, PORCINE LUNG) [Concomitant]
  7. CLAFORAN [Concomitant]

REACTIONS (2)
  - Intraventricular haemorrhage [None]
  - Pulmonary haemorrhage [None]
